FAERS Safety Report 11258825 (Version 1)
Quarter: 2015Q3

REPORT INFORMATION
  Report Type: Spontaneous
  Country: US (occurrence: US)
  Receive Date: 20150710
  Receipt Date: 20150710
  Transmission Date: 20151125
  Serious: No
  Sender: FDA-Public Use
  Company Number: US-PFIZER INC-2015227940

PATIENT
  Sex: Female

DRUGS (1)
  1. XELJANZ [Suspect]
     Active Substance: TOFACITINIB CITRATE
     Indication: PAIN
     Dosage: UNK

REACTIONS (4)
  - Frequent bowel movements [Unknown]
  - Drug ineffective [Unknown]
  - Abdominal pain upper [Unknown]
  - Heart rate increased [Unknown]
